FAERS Safety Report 9333132 (Version 1)
Quarter: 2013Q2

REPORT INFORMATION
  Report Type: Spontaneous
  Country: US (occurrence: US)
  Receive Date: 20130606
  Receipt Date: 20130606
  Transmission Date: 20140414
  Serious: No
  Sender: FDA-Public Use
  Company Number: US-009507513-1305USA016435

PATIENT
  Sex: Male

DRUGS (3)
  1. CLARITIN REDITABS [Suspect]
     Indication: LACRIMATION INCREASED
     Dosage: UNK, UNKNOWN
     Route: 048
     Dates: start: 20130502
  2. CLARITIN REDITABS [Suspect]
     Indication: EYE PRURITUS
  3. CLARITIN REDITABS [Suspect]
     Indication: RHINORRHOEA

REACTIONS (1)
  - Drug ineffective [Unknown]
